FAERS Safety Report 15898144 (Version 1)
Quarter: 2019Q1

REPORT INFORMATION
  Report Type: Spontaneous
  Country: US (occurrence: US)
  Receive Date: 20190201
  Receipt Date: 20190201
  Transmission Date: 20190417
  Serious: No
  Sender: FDA-Public Use
  Company Number: US-ELI_LILLY_AND_COMPANY-US201901014195

PATIENT
  Sex: Female

DRUGS (5)
  1. METFORMIN [Concomitant]
     Active Substance: METFORMIN HYDROCHLORIDE
     Indication: PRODUCT USED FOR UNKNOWN INDICATION
     Dosage: 1000 MG, BID
  2. HUMULIN R U-500 [Suspect]
     Active Substance: INSULIN HUMAN
     Indication: PRODUCT USED FOR UNKNOWN INDICATION
     Dosage: 100 U, TID
     Route: 058
  3. HUMULIN R [Suspect]
     Active Substance: INSULIN HUMAN
     Indication: PRODUCT USED FOR UNKNOWN INDICATION
     Dosage: 20 U, UNKNOWN
     Route: 058
  4. VICTOZA [Concomitant]
     Active Substance: LIRAGLUTIDE
     Indication: PRODUCT USED FOR UNKNOWN INDICATION
     Dosage: 1.8 MG, DAILY
  5. JARDIANCE [Concomitant]
     Active Substance: EMPAGLIFLOZIN
     Indication: PRODUCT USED FOR UNKNOWN INDICATION
     Dosage: 25 MG, DAILY

REACTIONS (2)
  - Wrong technique in product usage process [Unknown]
  - Incorrect dose administered [Unknown]
